FAERS Safety Report 6670006-0 (Version None)
Quarter: 2010Q2

REPORT INFORMATION
  Report Type: 
  Country: None (occurrence: None)
  Receive Date: 20100406
  Receipt Date: 20100212
  Transmission Date: 20101027
  Serious: No
  Sender: FDA-Public Use
  Company Number: US-ALLERGAN-1001263US

PATIENT
  Age: 37 Year
  Sex: Female

DRUGS (1)
  1. LATISSE [Suspect]
     Indication: GROWTH OF EYELASHES
     Dosage: 3 GTT, QHS
     Route: 061
     Dates: start: 20091208

REACTIONS (4)
  - DRUG INEFFECTIVE [None]
  - DRY EYE [None]
  - TRICHIASIS [None]
  - WRONG TECHNIQUE IN DRUG USAGE PROCESS [None]
